FAERS Safety Report 9384410 (Version 1)
Quarter: 2013Q3

REPORT INFORMATION
  Report Type: Report from Study
  Country: BR (occurrence: BR)
  Receive Date: 20130705
  Receipt Date: 20130705
  Transmission Date: 20140515
  Serious: Yes (Other)
  Sender: FDA-Public Use
  Company Number: PHHY2013BR070477

PATIENT
  Age: 49 Year
  Sex: Female
  Weight: 74 kg

DRUGS (3)
  1. SANDOSTATIN LAR [Suspect]
     Indication: ACROMEGALY
     Dosage: 20 MG, A MONTH
     Dates: start: 20120801, end: 20121221
  2. SANDOSTATIN LAR [Suspect]
     Dosage: 20 MG, A MONTH
     Dates: start: 20130509
  3. NIMESULIDE [Concomitant]
     Indication: HEADACHE
     Dosage: UNK UKN, UNK
     Dates: start: 2009

REACTIONS (4)
  - Neoplasm [Recovering/Resolving]
  - Blood growth hormone increased [Recovered/Resolved]
  - Blood glucose increased [Recovered/Resolved]
  - Headache [Unknown]
